FAERS Safety Report 23179083 (Version 2)
Quarter: 2023Q4

REPORT INFORMATION
  Report Type: Report from Study
  Country: US (occurrence: US)
  Receive Date: 20231113
  Receipt Date: 20231123
  Transmission Date: 20240109
  Serious: No
  Sender: FDA-Public Use
  Company Number: US-ALXN-202311USA000452US

PATIENT
  Sex: Female

DRUGS (2)
  1. STRENSIQ [Suspect]
     Active Substance: ASFOTASE ALFA
     Indication: Product used for unknown indication
     Dosage: UNK
     Route: 065
  2. STRENSIQ [Suspect]
     Active Substance: ASFOTASE ALFA
     Dosage: UNK

REACTIONS (5)
  - Pain in extremity [Unknown]
  - Myalgia [Unknown]
  - Injection site pain [Unknown]
  - Injection site erythema [Recovered/Resolved]
  - Injection site bruising [Unknown]
